FAERS Safety Report 9223756 (Version 2)
Quarter: 2013Q2

REPORT INFORMATION
  Report Type: Report from Study
  Country: US (occurrence: US)
  Receive Date: 20130410
  Receipt Date: 20130410
  Transmission Date: 20140414
  Serious: Yes (Hospitalization, Other)
  Sender: FDA-Public Use
  Company Number: US-ALEXION PHARMACEUTICALS INC.-A201000710

PATIENT
  Age: 49 Year
  Sex: Female
  Weight: 93.42 kg

DRUGS (21)
  1. BLINDED ECULIZUMAB [Suspect]
     Dosage: UNK
     Route: 042
     Dates: start: 20100129
  2. BLINDED PLACEBO [Suspect]
     Dosage: UNK
     Route: 042
     Dates: start: 20100129
  3. MESTINON [Concomitant]
     Indication: MYASTHENIA GRAVIS
     Dosage: 180 MG, Q 4 HRS
     Route: 048
     Dates: start: 20081217
  4. XANAX [Concomitant]
     Indication: ANXIETY
     Dosage: .5 MG, QD
     Dates: start: 200712
  5. XANAX [Concomitant]
     Dosage: 0.25 MG, BID
     Route: 048
     Dates: start: 200807
  6. PREDNISONE [Concomitant]
     Indication: MYASTHENIA GRAVIS
     Dosage: 50 MG, QD
     Route: 048
     Dates: start: 20091020
  7. FOLIC ACID [Concomitant]
     Indication: SUPPLEMENTATION THERAPY
     Dosage: 800-1000 MG QD
     Route: 048
     Dates: start: 20090206
  8. VITAMIN C                          /00008001/ [Concomitant]
     Indication: SUPPLEMENTATION THERAPY
     Dosage: 2000 MG, QD
     Dates: start: 20090206
  9. CALCIUM W/VITAMIN D                /00188401/ [Concomitant]
     Indication: SUPPLEMENTATION THERAPY
     Dosage: 1200 MG, QD
     Route: 048
     Dates: start: 20090206
  10. FERROUS SULFATE [Concomitant]
     Indication: SUPPLEMENTATION THERAPY
     Dosage: 325 MG, TID
     Dates: start: 20090206
  11. GABAPENTIN [Concomitant]
     Dosage: 100 MG, QD
  12. NEXIUM                             /01479302/ [Concomitant]
     Indication: GASTROOESOPHAGEAL REFLUX DISEASE
     Dosage: 20 MG, QD
     Dates: start: 20091218, end: 20100711
  13. LASIX                              /00032601/ [Concomitant]
     Indication: CUSHING^S SYNDROME
     Dosage: 40 MG, QOD
     Dates: start: 20100310
  14. POTASSIUM CHLORIDE [Concomitant]
     Indication: PROPHYLAXIS
     Dosage: 40 MG, QD
     Route: 048
     Dates: start: 20100303
  15. OMEGA 3 FISH OIL [Concomitant]
     Indication: SUPPLEMENTATION THERAPY
     Dosage: 2000 MG, BID
     Route: 048
     Dates: start: 20090206
  16. RENOVA [Concomitant]
     Indication: SKIN STRIAE
     Dosage: 0.05%
     Route: 061
     Dates: start: 20100506
  17. RENOVA [Concomitant]
     Indication: CUSHING^S SYNDROME
  18. VITAMIN A /00056001/ [Concomitant]
     Indication: SUPPLEMENTATION THERAPY
     Dosage: 800 IU
     Route: 048
     Dates: start: 20090206
  19. HEPARIN LOCK FLUSH [Concomitant]
     Indication: PROPHYLAXIS
     Dosage: 3 ML, QW
     Route: 042
     Dates: start: 20100127, end: 20100714
  20. IBUPROFEN [Concomitant]
     Indication: HEADACHE
     Dosage: 400 MG, PRN
     Route: 048
     Dates: start: 20100316
  21. PRILOSEC                           /00661201/ [Concomitant]
     Indication: GASTROOESOPHAGEAL REFLUX DISEASE
     Dosage: 20 MG, QD
     Route: 048
     Dates: start: 20090716, end: 20091217

REACTIONS (10)
  - Myasthenia gravis [Recovered/Resolved]
  - Myasthenia gravis crisis [Unknown]
  - Local swelling [None]
  - Respiratory distress [None]
  - Diabetes mellitus [None]
  - Non-alcoholic steatohepatitis [None]
  - Atelectasis [None]
  - Viral infection [None]
  - Blood pressure systolic increased [None]
  - Respiratory failure [None]
